FAERS Safety Report 5036612-4 (Version None)
Quarter: 2006Q2

REPORT INFORMATION
  Report Type: 
  Country: None (occurrence: None)
  Receive Date: 20060623
  Receipt Date: 20060606
  Transmission Date: 20061013
  Serious: Yes (Other)
  Sender: FDA-Public Use
  Company Number: ES200606001833

PATIENT
  Age: 67 Year
  Sex: Female

DRUGS (10)
  1. FORTEO [Suspect]
     Indication: OSTEOPOROSIS POSTMENOPAUSAL
     Dosage: 20 UG DAILY (1/D) SUBCUTANEOUS
     Route: 058
     Dates: start: 20050531
  2. FORTEO PEN                       (FORTEO PEN) [Concomitant]
  3. TRAMADOL HCL [Concomitant]
  4. EUTIROX (LEVOTHYROXINE ) [Concomitant]
  5. DOGMATYL (SULPIRIDE) [Concomitant]
  6. RABEPRAZOLE SODIUM [Concomitant]
  7. ACETAMINOPHEN [Concomitant]
  8. DAFLON (DIOSMIN) [Concomitant]
  9. FARMORUBICIN HL (EPIRIBUCIN HYDROCHLORIDE) [Concomitant]
  10. CYCLOPHOSPHAMIDE [Concomitant]

REACTIONS (2)
  - BREAST CANCER FEMALE [None]
  - PROGESTERONE RECEPTOR ASSAY POSITIVE [None]
